FAERS Safety Report 11207977 (Version 2)
Quarter: 2015Q3

REPORT INFORMATION
  Report Type: Report from Study
  Country: US (occurrence: None)
  Receive Date: 20150619
  Receipt Date: 20150716
  Transmission Date: 20151125
  Serious: Yes (Hospitalization)
  Sender: FDA-Public Use
  Company Number: 2015SGN01002

PATIENT
  Age: 37 Year
  Sex: Male
  Weight: 62.6 kg

DRUGS (11)
  1. DOXORUBICIN (DOXORUBICIN) INJECTION [Suspect]
     Active Substance: DOXORUBICIN
     Indication: HODGKIN^S DISEASE
     Route: 042
     Dates: start: 20150423
  2. CLARITIN /00917501/ (LORATADINE) [Concomitant]
  3. NEUPOGEN (FILGRASTIM) [Concomitant]
     Active Substance: FILGRASTIM
  4. DACARBAZINE (DACARBAZINE) INJECTION [Suspect]
     Active Substance: DACARBAZINE
     Indication: HODGKIN^S DISEASE
     Route: 042
     Dates: start: 20150423
  5. VINBLASTINE (VINBLASTINE SULFATE) INJECTION [Suspect]
     Active Substance: VINBLASTINE
     Indication: HODGKIN^S DISEASE
     Route: 042
     Dates: start: 20150423
  6. OXYCONTIN [Concomitant]
     Active Substance: OXYCODONE HYDROCHLORIDE
  7. KYTRIL (GRANISETRON HYDROCHLORIDE) [Concomitant]
  8. BRENTUXIMAB VEDOTIN (BRENTUXIMAB VEDOTIN) INJECTION [Suspect]
     Active Substance: BRENTUXIMAB VEDOTIN
     Indication: HODGKIN^S DISEASE
     Route: 042
     Dates: start: 20150423
  9. ATIVAN [Concomitant]
     Active Substance: LORAZEPAM
  10. PRILOSEC /00661201) (OMEPRAZOLE) [Concomitant]
  11. LOVENOX [Concomitant]
     Active Substance: ENOXAPARIN SODIUM

REACTIONS (6)
  - Dehydration [None]
  - Fatigue [None]
  - Hypophagia [None]
  - Productive cough [None]
  - Back pain [None]
  - Lactic acidosis [None]

NARRATIVE: CASE EVENT DATE: 20150602
